FAERS Safety Report 19403514 (Version 1)
Quarter: 2021Q2

REPORT INFORMATION
  Report Type: Spontaneous
  Country: CA (occurrence: CA)
  Receive Date: 20210610
  Receipt Date: 20210610
  Transmission Date: 20210717
  Serious: Yes (Other)
  Sender: FDA-Public Use
  Company Number: CA-JNJFOC-20210615555

PATIENT
  Age: 52 Year
  Sex: Female

DRUGS (1)
  1. INFLIXIMAB, RECOMBINANT [Suspect]
     Active Substance: INFLIXIMAB
     Indication: COLITIS ULCERATIVE
     Route: 042

REACTIONS (7)
  - Wound haemorrhage [Unknown]
  - Faecal calprotectin increased [Unknown]
  - Scab [Unknown]
  - Off label use [Unknown]
  - Scratch [Unknown]
  - Condition aggravated [Unknown]
  - Pruritus [Unknown]
